FAERS Safety Report 6000693-1 (Version None)
Quarter: 2008Q4

REPORT INFORMATION
  Report Type: 
  Country: None (occurrence: None)
  Receive Date: 20081215
  Receipt Date: 20081212
  Transmission Date: 20090506
  Serious: Yes (Hospitalization)
  Sender: FDA-Public Use
  Company Number: US-PFIZER INC-2005106964

PATIENT
  Sex: Male
  Weight: 105 kg

DRUGS (7)
  1. INHALED HUMAN INSULIN [Suspect]
     Indication: TYPE 2 DIABETES MELLITUS
     Dosage: UNK
     Route: 055
     Dates: start: 20030205, end: 20050202
  2. *INSULIN GLARGINE [Suspect]
     Indication: TYPE 2 DIABETES MELLITUS
     Dosage: 32 IU, 1X/DAY
     Route: 058
     Dates: start: 20030205
  3. *INSULIN LISPRO [Suspect]
     Indication: TYPE 2 DIABETES MELLITUS
     Route: 058
     Dates: start: 20050203
  4. AMLODIPINE [Concomitant]
     Route: 048
     Dates: start: 20040106
  5. LISINOPRIL [Concomitant]
     Route: 048
     Dates: start: 20010626, end: 20050616
  6. ACETYLSALICYLATE LYSINE [Concomitant]
     Route: 048
     Dates: start: 19950630
  7. FENOFIBRATE [Concomitant]
     Route: 048
     Dates: start: 20020120

REACTIONS (3)
  - DEHYDRATION [None]
  - DIARRHOEA [None]
  - RENAL FAILURE ACUTE [None]
